FAERS Safety Report 7007982-2 (Version None)
Quarter: 2010Q3

REPORT INFORMATION
  Report Type: 
  Country: None (occurrence: None)
  Receive Date: 20100922
  Receipt Date: 20100909
  Transmission Date: 20110219
  Serious: Yes (Disabling, Other)
  Sender: FDA-Public Use
  Company Number: PHHY2010JP59870

PATIENT
  Sex: Male

DRUGS (8)
  1. AFINITOR [Suspect]
     Indication: METASTATIC RENAL CELL CARCINOMA
     Dosage: 5 MG DAILY
     Route: 048
     Dates: start: 20100705, end: 20100718
  2. AFINITOR [Suspect]
     Dosage: 10 MG DAILY
     Route: 048
     Dates: start: 20100719, end: 20100726
  3. AFINITOR [Suspect]
     Dosage: 10 MG DAILY
     Route: 048
     Dates: start: 20100811
  4. INTERFERON ALFA [Concomitant]
     Indication: METASTATIC RENAL CELL CARCINOMA
     Dosage: 3000000 DF, UNK
     Route: 065
     Dates: start: 20100113, end: 20100101
  5. AMARYL [Concomitant]
     Dosage: 5 MG, UNK
     Route: 048
  6. SINGULAIR [Concomitant]
     Dosage: 10 MG, UNK
     Route: 048
  7. HYPEN [Concomitant]
     Dosage: 200 MG, UNK
     Route: 048
  8. TAKEPRON [Concomitant]
     Dosage: 15 MG, UNK
     Route: 048

REACTIONS (3)
  - C-REACTIVE PROTEIN INCREASED [None]
  - DIABETES MELLITUS [None]
  - PATHOLOGICAL FRACTURE [None]
